FAERS Safety Report 20023747 (Version 1)
Quarter: 2021Q4

REPORT INFORMATION
  Report Type: Spontaneous
  Country: US (occurrence: US)
  Receive Date: 20211102
  Receipt Date: 20211102
  Transmission Date: 20220303
  Serious: Yes (Other)
  Sender: FDA-Public Use
  Company Number: US-GLAXOSMITHKLINE-US2021GSK225788

PATIENT
  Sex: Male

DRUGS (7)
  1. ZANTAC [Suspect]
     Active Substance: RANITIDINE HYDROCHLORIDE
     Indication: Product used for unknown indication
     Dosage: UNKNOWN AT THIS TIME, USUALLY A PILL EVERY OTHER DAY
     Route: 065
     Dates: start: 201001, end: 201606
  2. ZANTAC [Suspect]
     Active Substance: RANITIDINE HYDROCHLORIDE
     Indication: Product used for unknown indication
     Dosage: UNKNOWN AT THIS TIME, USUALLY A PILL EVERY OTHER DAY
     Route: 065
     Dates: start: 201001, end: 201606
  3. ZANTAC [Suspect]
     Active Substance: RANITIDINE HYDROCHLORIDE
     Indication: Product used for unknown indication
     Dosage: UNKNOWN AT THIS TIME, USUALLY A PILL EVERY OTHER DAY
     Route: 065
     Dates: start: 201001, end: 201606
  4. RANITIDINE [Suspect]
     Active Substance: RANITIDINE
     Indication: Product used for unknown indication
     Dosage: UNKNOWN AT THIS TIME, USUALLY A PILL EVERY OTHER DAY
     Route: 065
     Dates: start: 201001, end: 201606
  5. RANITIDINE HYDROCHLORIDE [Suspect]
     Active Substance: RANITIDINE HYDROCHLORIDE
     Indication: Product used for unknown indication
     Dosage: UNKNOWN AT THIS TIME, USUALLY A PILL EVERY OTHER DAY
     Route: 065
     Dates: start: 201001, end: 201606
  6. RANITIDINE HYDROCHLORIDE [Suspect]
     Active Substance: RANITIDINE HYDROCHLORIDE
     Indication: Product used for unknown indication
     Dosage: UNKNOWN AT THIS TIME, USUALLY A PILL EVERY OTHER DAY
     Route: 065
     Dates: start: 201001, end: 201606
  7. RANITIDINE [Suspect]
     Active Substance: RANITIDINE
     Indication: Product used for unknown indication
     Dosage: UNKNOWN AT THIS TIME, USUALLY A PILL EVERY OTHER DAY
     Route: 065
     Dates: start: 201001, end: 201606

REACTIONS (1)
  - Prostate cancer [Unknown]
